FAERS Safety Report 7583421-8 (Version None)
Quarter: 2011Q2

REPORT INFORMATION
  Report Type: 
  Country: None (occurrence: None)
  Receive Date: 20110623
  Receipt Date: 20110613
  Transmission Date: 20111010
  Serious: Yes (Hospitalization)
  Sender: FDA-Public Use
  Company Number: 2011S1000039

PATIENT
  Age: 54 Year
  Sex: Female
  Weight: 58.0604 kg

DRUGS (14)
  1. METHYLPREDNISOLONE [Suspect]
     Indication: PRODUCT USED FOR UNKNOWN INDICATION
  2. ALLEGRA [Concomitant]
  3. PANTOPRAZOLE [Concomitant]
  4. FENTANYL [Concomitant]
  5. TRAMADOL HCL [Concomitant]
  6. KRYSTEXXA [Suspect]
     Indication: PRODUCT USED FOR UNKNOWN INDICATION
     Dates: start: 20110418, end: 20110418
  7. SOLU-MEDROL [Concomitant]
  8. ACETAMINOPHEN [Concomitant]
  9. ACETAMINOPHEN AND HYDROCODONE BITARTRATE [Concomitant]
  10. KLOR-CON [Concomitant]
  11. NORVASC [Concomitant]
  12. CALCIUM CARBONATE [Concomitant]
  13. IRON SULFATETHIAMIN COMPOUND TAB [Concomitant]
  14. VITAMIN D [Concomitant]

REACTIONS (3)
  - ESCHERICHIA URINARY TRACT INFECTION [None]
  - CONDITION AGGRAVATED [None]
  - ANAEMIA [None]
